FAERS Safety Report 11982847 (Version 1)
Quarter: 2016Q1

REPORT INFORMATION
  Report Type: Spontaneous
  Country: PR (occurrence: None)
  Receive Date: 20160129
  Receipt Date: 20160129
  Transmission Date: 20160526
  Serious: Yes (Hospitalization, Disabling)
  Sender: FDA-Public Use
  Company Number: None

PATIENT
  Age: 76 Year
  Sex: Male
  Weight: 95 kg

DRUGS (11)
  1. ATORVASTATIN [Concomitant]
     Active Substance: ATORVASTATIN
  2. CLOPIDOGREL [Concomitant]
     Active Substance: CLOPIDOGREL BISULFATE
  3. PARACETAMOL [Concomitant]
     Active Substance: ACETAMINOPHEN
  4. CIPROFLOXACIN. [Suspect]
     Active Substance: CIPROFLOXACIN
     Indication: URINARY TRACT INFECTION BACTERIAL
     Dosage: 10 TABS OVER FIVE DAYS, TWICE DAILY, TAKEN BY MOUTH
     Dates: start: 20150210, end: 20150710
  5. NITROFURANTOIN. [Concomitant]
     Active Substance: NITROFURANTOIN
  6. GLICLAZIDE [Concomitant]
     Active Substance: GLICLAZIDE
  7. LISINOPRIL. [Concomitant]
     Active Substance: LISINOPRIL
  8. CLONAZEPAM. [Concomitant]
     Active Substance: CLONAZEPAM
  9. OMEPRAZOLE. [Concomitant]
     Active Substance: OMEPRAZOLE
  10. FERROUS SULFATE [Concomitant]
     Active Substance: FERROUS SULFATE\FERROUS SULFATE, DRIED
  11. NEBIVOLOL. [Concomitant]
     Active Substance: NEBIVOLOL

REACTIONS (10)
  - Myoclonus [None]
  - Temperature intolerance [None]
  - Ageusia [None]
  - Nightmare [None]
  - Nausea [None]
  - Hemiparesis [None]
  - Fatigue [None]
  - Malaise [None]
  - Balance disorder [None]
  - Mood altered [None]

NARRATIVE: CASE EVENT DATE: 20150210
